FAERS Safety Report 22616092 (Version 2)
Quarter: 2023Q2

REPORT INFORMATION
  Report Type: Spontaneous
  Country: JP (occurrence: JP)
  Receive Date: 20230619
  Receipt Date: 20230622
  Transmission Date: 20230722
  Serious: Yes (Other)
  Sender: FDA-Public Use
  Company Number: JP-ONO-2023JP012367

PATIENT
  Age: 78 Year
  Sex: Female

DRUGS (3)
  1. BRAFTOVI [Suspect]
     Active Substance: ENCORAFENIB
     Indication: Colon cancer
     Dosage: 300 MG
     Route: 048
     Dates: start: 20230512
  2. MEKTOVI [Suspect]
     Active Substance: BINIMETINIB
     Indication: Colon cancer
     Dosage: 90 MG
     Route: 048
     Dates: start: 20230512
  3. ERBITUX [Concomitant]
     Active Substance: CETUXIMAB
     Indication: Colon cancer
     Dosage: 500 MG
     Route: 065
     Dates: start: 20230512

REACTIONS (3)
  - Retinal exudates [Recovering/Resolving]
  - Central serous chorioretinopathy [Recovering/Resolving]
  - Metamorphopsia [Unknown]

NARRATIVE: CASE EVENT DATE: 20230513
